FAERS Safety Report 6011019-1 (Version None)
Quarter: 2008Q4

REPORT INFORMATION
  Report Type: 
  Country: None (occurrence: None)
  Receive Date: 20081217
  Receipt Date: 20081217
  Transmission Date: 20090506
  Serious: Yes (Life-Threatening)
  Sender: FDA-Public Use
  Company Number: None

PATIENT
  Age: 75 Year
  Sex: Male
  Weight: 90.7194 kg

DRUGS (1)
  1. ISOSORBIDE MONONITRATE [Suspect]
     Indication: CARDIAC DISORDER
     Dosage: ONE TABLET DAILY PO
     Route: 048
     Dates: start: 20070101, end: 20081215

REACTIONS (2)
  - ARRHYTHMIA [None]
  - PRODUCT QUALITY ISSUE [None]
